FAERS Safety Report 4694469-5 (Version None)
Quarter: 2005Q2

REPORT INFORMATION
  Report Type: 
  Country: None (occurrence: None)
  Receive Date: 20050620
  Receipt Date: 20050511
  Transmission Date: 20051028
  Serious: Yes (Hospitalization)
  Sender: FDA-Public Use
  Company Number: JP-ROCHE-404351

PATIENT
  Age: 80 Year
  Sex: Female

DRUGS (6)
  1. TORSEMIDE [Suspect]
     Indication: CARDIAC FAILURE
     Route: 048
     Dates: start: 20050406, end: 20050414
  2. DIOVAN [Concomitant]
     Dates: start: 20050115
  3. AMLODIN [Concomitant]
     Dates: start: 20050115
  4. CARDENALIN [Concomitant]
     Dates: start: 20050115
  5. GASTER [Concomitant]
     Dosage: REPORTED AS GASTER D.
     Dates: start: 20050115
  6. LASIX [Concomitant]
     Dates: start: 20050115

REACTIONS (2)
  - LEUKOPENIA [None]
  - THROMBOCYTOPENIA [None]
